FAERS Safety Report 8266212-4 (Version None)
Quarter: 2012Q2

REPORT INFORMATION
  Report Type: 
  Country: None (occurrence: None)
  Receive Date: 20120406
  Receipt Date: 20120327
  Transmission Date: 20120825
  Serious: Yes (Hospitalization, Other)
  Sender: FDA-Public Use
  Company Number: CA-ROCHE-1013892

PATIENT
  Sex: Female

DRUGS (10)
  1. XOLAIR [Suspect]
     Indication: ASTHMA
     Route: 058
     Dates: start: 20100902
  2. SPIRIVA [Concomitant]
  3. WELLBUTRIN [Concomitant]
  4. ADVAIR DISKUS 100/50 [Concomitant]
  5. FLU VACCINATION [Concomitant]
  6. PREDNISONE TAB [Concomitant]
  7. PREVACID [Concomitant]
  8. ZOLOFT [Concomitant]
  9. OMNARIS [Concomitant]
  10. VENTOLIN [Concomitant]

REACTIONS (15)
  - OROPHARYNGEAL PAIN [None]
  - COUGH [None]
  - DEPRESSION [None]
  - INFLUENZA [None]
  - MALAISE [None]
  - DYSPHONIA [None]
  - NAUSEA [None]
  - DEHYDRATION [None]
  - HEADACHE [None]
  - NASAL CONGESTION [None]
  - DIZZINESS [None]
  - NASOPHARYNGITIS [None]
  - FATIGUE [None]
  - VOMITING [None]
  - GASTROENTERITIS VIRAL [None]
